FAERS Safety Report 10380896 (Version 1)
Quarter: 2014Q1

REPORT INFORMATION
  Report Type: Spontaneous
  Country: US (occurrence: None)
  Receive Date: 20140306
  Receipt Date: 20140306
  Transmission Date: 20141002
  Serious: Yes (Hospitalization)
  Sender: FDA-Public Use
  Company Number: 163-21880-13072648

PATIENT
  Age: 71 Year
  Sex: Female
  Weight: 86 kg

DRUGS (10)
  1. REVLIMID (LENALIDOMIDE) (15 MILLIGRAM, CAPSULES) [Suspect]
     Indication: PLASMA CELL MYELOMA
     Dosage: 15 MG, 21 IN 21 D, PO
     Route: 048
     Dates: start: 20130122
  2. DEXAMETHASONE (DEXAMETHASONE) [Concomitant]
  3. CENTRUM SILVER (CENTRUM SILVER) [Concomitant]
  4. KLOR-CON(POTASSIUM CHLORIDE) [Concomitant]
  5. METFORMIN HCL(METFORMIN HYDROCHLORIDE) [Concomitant]
  6. LIOTHYRONINE SODIUM(LIOTHYRONINE SODIUM) [Concomitant]
  7. LEVOTHYROXINE SODIUM(LEVOTHYROXINE SODIUM) [Concomitant]
  8. FENOFIBRATE(FENOFIBRATE) [Concomitant]
  9. NIFEDIPINE (NIFEDIPINE) [Concomitant]
  10. ATENOLOL(ATENOLOL) [Concomitant]

REACTIONS (3)
  - Pulmonary embolism [None]
  - Deep vein thrombosis [None]
  - Drug dose omission [None]
